FAERS Safety Report 4853111-0 (Version None)
Quarter: 2005Q4

REPORT INFORMATION
  Report Type: 
  Country: None (occurrence: None)
  Receive Date: 20051212
  Receipt Date: 20051129
  Transmission Date: 20060501
  Serious: Yes (Hospitalization, Other)
  Sender: FDA-Public Use
  Company Number: HQWYE737929NOV05

PATIENT
  Age: 67 Year
  Sex: Male

DRUGS (10)
  1. PROPRANOLOL HCL [Suspect]
     Dosage: ORAL
     Route: 048
     Dates: start: 20050711, end: 20050909
  2. NEO-MERCAZOLE TAB [Suspect]
     Dosage: 20 MG 3X PER 1 DAY, ORAL
     Route: 048
     Dates: start: 20050711, end: 20050909
  3. CRESTOR [Concomitant]
  4. LEVOTHYROXINE SODIUM [Concomitant]
  5. PERMIXON (SERENOA REPENS) [Concomitant]
  6. GLUCOPHAGE [Concomitant]
  7. QUINAPRIL HCL [Concomitant]
  8. KERLONE [Concomitant]
  9. STABLON (TIANEPTINE) [Concomitant]
  10. STILLNOX (ZOLPIDEM) [Concomitant]

REACTIONS (6)
  - CARDIAC TAMPONADE [None]
  - CONFUSIONAL STATE [None]
  - OEDEMA PERIPHERAL [None]
  - PLEURAL EFFUSION [None]
  - PLEUROPERICARDITIS [None]
  - RESPIRATORY FAILURE [None]
